FAERS Safety Report 20099045 (Version 1)
Quarter: 2021Q4

REPORT INFORMATION
  Report Type: Spontaneous
  Country: US (occurrence: US)
  Receive Date: 20211122
  Receipt Date: 20211122
  Transmission Date: 20220303
  Serious: Yes (Hospitalization, Other)
  Sender: FDA-Public Use
  Company Number: US-HORIZON THERAPEUTICS-HZN-2021-008895

PATIENT

DRUGS (1)
  1. RAYOS [Suspect]
     Active Substance: PREDNISONE
     Indication: Giant cell arteritis
     Dosage: 20 MG
     Route: 048

REACTIONS (8)
  - Osteomyelitis [Unknown]
  - Pseudomonas infection [Unknown]
  - Mastoiditis [Unknown]
  - Hypoacusis [Unknown]
  - Facial paresis [Unknown]
  - Aphasia [Unknown]
  - Dysphagia [Unknown]
  - Infection [Unknown]
